FAERS Safety Report 11388598 (Version 2)
Quarter: 2015Q3

REPORT INFORMATION
  Report Type: Report from Study
  Country: CN (occurrence: CN)
  Receive Date: 20150817
  Receipt Date: 20150828
  Transmission Date: 20151125
  Serious: Yes (Hospitalization)
  Sender: FDA-Public Use
  Company Number: CN-PFIZER INC-2015248435

PATIENT
  Age: 55 Year
  Sex: Female
  Weight: 56 kg

DRUGS (2)
  1. GLIQUIDONE [Concomitant]
     Active Substance: GLIQUIDONE
     Indication: DIABETES MELLITUS
     Dosage: 1 TABLET, 2X/DAY
     Route: 048
  2. AXITINIB [Suspect]
     Active Substance: AXITINIB
     Indication: METASTATIC RENAL CELL CARCINOMA
     Dosage: 3 MG, 2X/DAY
     Route: 048
     Dates: start: 20100716, end: 20150703

REACTIONS (1)
  - Vitreous haemorrhage [Recovered/Resolved]

NARRATIVE: CASE EVENT DATE: 20141216
